FAERS Safety Report 6576167-6 (Version None)
Quarter: 2010Q1

REPORT INFORMATION
  Report Type: 
  Country: None (occurrence: None)
  Receive Date: 20100209
  Receipt Date: 20091215
  Transmission Date: 20100710
  Serious: Yes (Disabling, Other)
  Sender: FDA-Public Use
  Company Number: PHHY2009TN60658

PATIENT
  Sex: Female

DRUGS (3)
  1. ZOMETA [Suspect]
     Indication: METASTASES TO BREAST
     Dosage: 1 INFUSION PER MONTH
     Route: 042
     Dates: start: 20090101, end: 20091203
  2. FEMARA [Concomitant]
     Dosage: 2.5 MG, UNK
     Dates: start: 20081101
  3. ZOLADEX [Concomitant]

REACTIONS (3)
  - OSTEONECROSIS [None]
  - PAIN [None]
  - TRISMUS [None]
